FAERS Safety Report 6351056-0 (Version None)
Quarter: 2009Q3

REPORT INFORMATION
  Report Type: 
  Country: None (occurrence: None)
  Receive Date: 20090912
  Receipt Date: 20090622
  Transmission Date: 20100115
  Serious: No
  Sender: FDA-Public Use
  Company Number: US-ABBOTT-07P-163-0372669-00

PATIENT
  Sex: Female
  Weight: 52.21 kg

DRUGS (7)
  1. HUMIRA [Suspect]
     Indication: CROHN'S DISEASE
     Dosage: LOADING DOSE
     Route: 058
     Dates: start: 20070621
  2. PREDNISONE [Concomitant]
     Indication: CROHN'S DISEASE
     Route: 048
  3. MESALAZINE [Concomitant]
     Indication: CROHN'S DISEASE
     Route: 048
  4. LEVOTHYROXINE SODIUM [Concomitant]
     Indication: THYROID DISORDER
     Route: 048
  5. ASATHYOPRINE [Concomitant]
     Indication: CROHN'S DISEASE
     Route: 048
  6. VENLAFAXINE HCL [Concomitant]
     Indication: ANTIDEPRESSANT THERAPY
  7. CLONOZIPAN [Concomitant]
     Indication: ANXIETY
     Route: 048

REACTIONS (4)
  - INCORRECT DOSE ADMINISTERED [None]
  - PAIN [None]
  - PARAESTHESIA [None]
  - SENSORY DISTURBANCE [None]
